FAERS Safety Report 5881043-8 (Version None)
Quarter: 2008Q3

REPORT INFORMATION
  Report Type: 
  Country: None (occurrence: None)
  Receive Date: 20080912
  Receipt Date: 20080617
  Transmission Date: 20090109
  Serious: No
  Sender: FDA-Public Use
  Company Number: US-ABBOTT-08P-163-0457877-00

PATIENT
  Sex: Female
  Weight: 74.91 kg

DRUGS (4)
  1. HUMIRA [Suspect]
     Indication: CROHN'S DISEASE
     Dosage: NOT BIOLOGICAL NATIVE NO STARTER DOSE
     Route: 058
     Dates: start: 20080507, end: 20080604
  2. METRONIDAZOLE [Concomitant]
     Indication: CROHN'S DISEASE
     Route: 048
     Dates: start: 20080608
  3. VITAMIN TAB [Concomitant]
     Indication: VITAMIN SUPPLEMENTATION
     Route: 048
  4. CALCIUM W/VITAMIN D NOS [Concomitant]
     Indication: MINERAL SUPPLEMENTATION
     Dosage: 600 MG CALCIUM W/200-400 IU VITAMIN D

REACTIONS (4)
  - INJECTION SITE REACTION [None]
  - PRURITUS [None]
  - RASH PAPULAR [None]
  - URTICARIA [None]
